FAERS Safety Report 9124625 (Version 1)
Quarter: 2013Q1

REPORT INFORMATION
  Report Type: Spontaneous
  Country: FR (occurrence: FR)
  Receive Date: 20130116
  Receipt Date: 20130116
  Transmission Date: 20140127
  Serious: Yes (Hospitalization)
  Sender: FDA-Public Use
  Company Number: FR-BRISTOL-MYERS SQUIBB COMPANY-17280256

PATIENT
  Age: 73 Year
  Sex: Female

DRUGS (3)
  1. COUMADIN TABS 5 MG [Suspect]
     Indication: ATRIAL FIBRILLATION
     Route: 048
     Dates: start: 20120919, end: 20121004
  2. FLECAINE [Suspect]
     Indication: ATRIAL FIBRILLATION
     Dosage: SUSTAINED RELEASE CAPSULE
     Route: 048
     Dates: start: 20120923, end: 20121004
  3. TRIATEC [Suspect]
     Indication: ATRIAL FIBRILLATION
     Route: 048
     Dates: start: 20120920, end: 20121004

REACTIONS (5)
  - Rash macular [Recovered/Resolved]
  - Decreased appetite [Recovered/Resolved]
  - Nausea [Recovered/Resolved]
  - Dyspnoea [Recovered/Resolved]
  - Asthenia [Recovered/Resolved]
